FAERS Safety Report 7945875-4 (Version None)
Quarter: 2011Q4

REPORT INFORMATION
  Report Type: 
  Country: None (occurrence: None)
  Receive Date: 20111129
  Receipt Date: 20111117
  Transmission Date: 20120403
  Serious: Yes (Hospitalization, Other)
  Sender: FDA-Public Use
  Company Number: PHHY2011CA88577

PATIENT
  Sex: Male

DRUGS (1)
  1. SANDOSTATIN LAR [Suspect]
     Indication: ACROMEGALY
     Dosage: 20 MG, QMO
     Route: 030
     Dates: start: 20110907

REACTIONS (6)
  - DECREASED APPETITE [None]
  - CEREBROVASCULAR ACCIDENT [None]
  - ASTHENIA [None]
  - WEIGHT DECREASED [None]
  - PNEUMONIA [None]
  - BLOOD GLUCOSE FLUCTUATION [None]
